FAERS Safety Report 15680441 (Version 1)
Quarter: 2018Q4

REPORT INFORMATION
  Report Type: Report from Study
  Country: CN (occurrence: CN)
  Receive Date: 20181203
  Receipt Date: 20181203
  Transmission Date: 20190205
  Serious: Yes (Other)
  Sender: FDA-Public Use
  Company Number: CN-BRISTOL-MYERS SQUIBB COMPANY-BMS-2018-108779

PATIENT
  Age: 70 Year
  Sex: Female

DRUGS (1)
  1. NIVOLUMAB [Suspect]
     Active Substance: NIVOLUMAB
     Indication: LYMPHOMA
     Dosage: 1.5 MG/KG, UNK
     Route: 065

REACTIONS (1)
  - Cytokine release syndrome [Recovering/Resolving]
